FAERS Safety Report 4324931-6 (Version None)
Quarter: 2004Q1

REPORT INFORMATION
  Report Type: 
  Country: None (occurrence: None)
  Receive Date: 20040325
  Receipt Date: 20040325
  Transmission Date: 20041129
  Serious: Yes (Hospitalization)
  Sender: FDA-Public Use
  Company Number: None

PATIENT
  Age: 81 Year
  Sex: Male

DRUGS (7)
  1. DONEPEZIL HCL [Suspect]
     Indication: DEMENTIA
     Dosage: 10 QD PO
     Route: 048
     Dates: start: 20030617, end: 20031029
  2. TRAZODONE HCL [Concomitant]
  3. ASCORBIC ACID [Concomitant]
  4. FERROUS SULFATE TAB [Concomitant]
  5. HUMBID [Concomitant]
  6. AMOIDARONE [Concomitant]
  7. HYDROCHLOROTHIAZIDE [Concomitant]

REACTIONS (4)
  - DECREASED APPETITE [None]
  - NAUSEA [None]
  - VOMITING [None]
  - WEIGHT DECREASED [None]
